FAERS Safety Report 4503635-0 (Version None)
Quarter: 2004Q4

REPORT INFORMATION
  Report Type: 
  Country: None (occurrence: None)
  Receive Date: 20041115
  Receipt Date: 20041101
  Transmission Date: 20050328
  Serious: Yes (Hospitalization)
  Sender: FDA-Public Use
  Company Number: F04200400227

PATIENT
  Age: 78 Year
  Sex: Female

DRUGS (8)
  1. ELOXATIN [Suspect]
     Indication: GASTRIC CANCER
     Dosage: 70.95 MG/M2 OTHER (CUMULATIVE DOSE:  212.85 MG/M2) INTRAVENOUS DRIP
     Route: 041
     Dates: start: 20040504, end: 20040504
  2. ELOXATIN [Suspect]
     Indication: METASTASES TO LIVER
     Dosage: 70.95 MG/M2 OTHER (CUMULATIVE DOSE:  212.85 MG/M2) INTRAVENOUS DRIP
     Route: 041
     Dates: start: 20040504, end: 20040504
  3. XELODA [Concomitant]
  4. KALIUM-DURILES (POTASSIUM CHLORIDE) [Concomitant]
  5. ALLOPURINOL [Concomitant]
  6. ACE-INHIBITOR [Concomitant]
  7. ATENOLOL [Concomitant]
  8. DURAGESIC [Concomitant]

REACTIONS (15)
  - ANGIOSCLEROSIS [None]
  - ARTHRALGIA [None]
  - ASTHENIA [None]
  - CAROTID ARTERY DISEASE [None]
  - CEREBRAL ATROPHY [None]
  - CEREBRAL DISORDER [None]
  - DEHYDRATION [None]
  - DIZZINESS [None]
  - FATIGUE [None]
  - GENERAL PHYSICAL HEALTH DETERIORATION [None]
  - HAEMOGLOBIN DECREASED [None]
  - PALLOR [None]
  - PANCREATIC DISORDER [None]
  - PERCUSSION TEST ABNORMAL [None]
  - SYNCOPE [None]
